FAERS Safety Report 16020078 (Version 1)
Quarter: 2019Q1

REPORT INFORMATION
  Report Type: Report from Study
  Country: MX (occurrence: MX)
  Receive Date: 20190228
  Receipt Date: 20190228
  Transmission Date: 20190418
  Serious: Yes (Death)
  Sender: FDA-Public Use
  Company Number: PHHY2019MX046815

PATIENT
  Sex: Male

DRUGS (1)
  1. ENTRESTO [Suspect]
     Active Substance: SACUBITRIL\VALSARTAN
     Indication: CARDIAC FAILURE CHRONIC
     Dosage: 50 MG (24 MG SACUBITRIL/ 26 MG VALSARTAN), UNK
     Route: 065
     Dates: start: 201812

REACTIONS (1)
  - Death [Fatal]

NARRATIVE: CASE EVENT DATE: 20190205
